FAERS Safety Report 5750567-6 (Version None)
Quarter: 2008Q2

REPORT INFORMATION
  Report Type: 
  Country: None (occurrence: None)
  Receive Date: 20080523
  Receipt Date: 20080523
  Transmission Date: 20081010
  Serious: Yes (Life-Threatening, Hospitalization, Disabling)
  Sender: FDA-Public Use
  Company Number: None

PATIENT
  Sex: Female
  Weight: 48.9885 kg

DRUGS (1)
  1. OXYBUTYIN CHLORIDE [Suspect]
     Indication: HYPERTONIC BLADDER
     Dosage: 5 MG  2 TIMES/DAY
     Dates: start: 19991230, end: 20070526

REACTIONS (1)
  - DYSURIA [None]
